FAERS Safety Report 4661242-3 (Version None)
Quarter: 2005Q2

REPORT INFORMATION
  Report Type: 
  Country: None (occurrence: None)
  Receive Date: 20050421
  Receipt Date: 20050222
  Transmission Date: 20051028
  Serious: Yes (Hospitalization, Other)
  Sender: FDA-Public Use
  Company Number: US-JNJFOC-20050205244

PATIENT
  Age: 45 Year
  Sex: Male
  Weight: 77 kg

DRUGS (1)
  1. LEUSTATIN [Suspect]
     Indication: HAIRY CELL LEUKAEMIA
     Dosage: INTRAVENOUS
     Route: 042
     Dates: start: 20041227, end: 20041231

REACTIONS (1)
  - HAEMOLYTIC ANAEMIA [None]
